FAERS Safety Report 10239481 (Version 1)
Quarter: 2014Q2

REPORT INFORMATION
  Report Type: Spontaneous
  Country: US (occurrence: US)
  Receive Date: 20140616
  Receipt Date: 20140616
  Transmission Date: 20141212
  Serious: Yes (Death)
  Sender: FDA-Public Use
  Company Number: US-ASTELLAS-2014US006835

PATIENT
  Age: 55 Year
  Sex: Male

DRUGS (2)
  1. AMBISOME [Suspect]
     Indication: COCCIDIOIDOMYCOSIS
     Dosage: UNK, UNKNOWN FREQ.
     Route: 042
  2. AMBISOME [Suspect]
     Dosage: UNK, UNKNOWN FREQ.
     Route: 037

REACTIONS (1)
  - Drug ineffective [Fatal]
